FAERS Safety Report 9785432 (Version 2)
Quarter: 2014Q1

REPORT INFORMATION
  Report Type: Report from Study
  Country: US (occurrence: US)
  Receive Date: 20131227
  Receipt Date: 20140103
  Transmission Date: 20141002
  Serious: Yes (Hospitalization)
  Sender: FDA-Public Use
  Company Number: US-UCBSA-107055

PATIENT
  Age: 17 Year
  Sex: Female
  Weight: 47.6 kg

DRUGS (4)
  1. LACOSAMIDE [Suspect]
     Indication: EPILEPSY
     Route: 048
     Dates: start: 20131212
  2. LAMICTAL XR [Concomitant]
     Indication: EPILEPSY
     Dosage: AT NIGHT
     Route: 048
     Dates: start: 20131113
  3. FOLIC ACID [Concomitant]
     Indication: SUPPLEMENTATION THERAPY
     Route: 048
     Dates: start: 20130211
  4. KEPPRA [Concomitant]
     Indication: EPILEPSY
     Route: 048
     Dates: start: 20130625

REACTIONS (1)
  - Status epilepticus [Recovered/Resolved]
